FAERS Safety Report 25715096 (Version 2)
Quarter: 2025Q3

REPORT INFORMATION
  Report Type: Spontaneous
  Country: JP (occurrence: JP)
  Receive Date: 20250822
  Receipt Date: 20250926
  Transmission Date: 20251021
  Serious: Yes (Life-Threatening, Hospitalization)
  Sender: JOHNSON AND JOHNSON
  Company Number: JP-JNJFOC-20250705071

PATIENT
  Age: 75 Year
  Sex: Female
  Weight: 46 kg

DRUGS (7)
  1. RYBREVANT [Suspect]
     Active Substance: AMIVANTAMAB-VMJW
     Indication: EGFR gene mutation
     Route: 041
     Dates: start: 20250618, end: 20250618
  2. RYBREVANT [Suspect]
     Active Substance: AMIVANTAMAB-VMJW
     Route: 041
     Dates: start: 202506, end: 202506
  3. RYBREVANT [Suspect]
     Active Substance: AMIVANTAMAB-VMJW
     Route: 041
     Dates: start: 20250728, end: 20250728
  4. CARBOPLATIN [Suspect]
     Active Substance: CARBOPLATIN
     Indication: Product used for unknown indication
     Route: 041
     Dates: start: 20250618
  5. CARBOPLATIN [Suspect]
     Active Substance: CARBOPLATIN
     Route: 041
     Dates: start: 20250728, end: 20250728
  6. ALIMTA [Suspect]
     Active Substance: PEMETREXED DISODIUM
     Indication: Product used for unknown indication
     Route: 041
     Dates: start: 20250618
  7. ALIMTA [Suspect]
     Active Substance: PEMETREXED DISODIUM
     Route: 041
     Dates: start: 20250728, end: 20250728

REACTIONS (4)
  - Abdominal abscess [Recovered/Resolved]
  - Rash [Recovering/Resolving]
  - Skin haemorrhage [Recovering/Resolving]
  - Off label use [Unknown]

NARRATIVE: CASE EVENT DATE: 20250601
